FAERS Safety Report 25544243 (Version 2)
Quarter: 2025Q3

REPORT INFORMATION
  Report Type: Spontaneous
  Country: GB (occurrence: GB)
  Receive Date: 20250711
  Receipt Date: 20250721
  Transmission Date: 20251021
  Serious: No
  Sender: PFIZER
  Company Number: GB-PFIZER INC-202500135434

PATIENT
  Age: 51 Year
  Sex: Female

DRUGS (1)
  1. GENOTROPIN [Suspect]
     Active Substance: SOMATROPIN
     Indication: Hypopituitarism
     Dosage: 0.5 MG, EVERY NIGHT (ON)
     Route: 058

REACTIONS (2)
  - Device mechanical issue [Unknown]
  - Device breakage [Unknown]
